FAERS Safety Report 5435504-6 (Version None)
Quarter: 2007Q3

REPORT INFORMATION
  Report Type: 
  Country: None (occurrence: None)
  Receive Date: 20070831
  Receipt Date: 20070817
  Transmission Date: 20080115
  Serious: No
  Sender: FDA-Public Use
  Company Number: A0671037A

PATIENT

DRUGS (1)
  1. ALLI [Suspect]
     Dates: start: 20070718

REACTIONS (3)
  - CHEST DISCOMFORT [None]
  - HEADACHE [None]
  - PALPITATIONS [None]
